FAERS Safety Report 9146916 (Version 1)
Quarter: 2013Q1

REPORT INFORMATION
  Report Type: Spontaneous
  Country: IT (occurrence: IT)
  Receive Date: 20130307
  Receipt Date: 20130307
  Transmission Date: 20140127
  Serious: Yes (Hospitalization, Other)
  Sender: FDA-Public Use
  Company Number: IT-BRISTOL-MYERS SQUIBB COMPANY-17422338

PATIENT
  Age: 85 Year
  Sex: Female

DRUGS (5)
  1. COUMADIN TABS 5 MG [Suspect]
     Dosage: INTER-31JAN13
     Route: 048
     Dates: start: 19960601
  2. SIMVASTATIN [Concomitant]
  3. BISOPROLOL HEMIFUMARATE [Concomitant]
  4. BLOPRESID [Concomitant]
     Dosage: 1DF=16/12.5MG TABS
  5. LIMPIDEX [Concomitant]
     Dosage: LIMPIDEX 15 MG TABS

REACTIONS (2)
  - Subdural haematoma [Recovering/Resolving]
  - Head injury [Unknown]
